FAERS Safety Report 5608083-8 (Version None)
Quarter: 2008Q1

REPORT INFORMATION
  Report Type: 
  Country: None (occurrence: None)
  Receive Date: 20080125
  Receipt Date: 20080125
  Transmission Date: 20080703
  Serious: Yes (Other)
  Sender: FDA-Public Use
  Company Number: None

PATIENT
  Sex: Male
  Weight: 97.5234 kg

DRUGS (1)
  1. AMOXICILLIN [Suspect]
     Indication: RESPIRATORY TRACT INFECTION
     Dosage: 3 CAPLETS DAILY PO
     Route: 048
     Dates: start: 20080111, end: 20080116

REACTIONS (7)
  - CHILLS [None]
  - HEADACHE [None]
  - PAIN [None]
  - PHARMACEUTICAL PRODUCT COUNTERFEIT [None]
  - PYREXIA [None]
  - SKIN ODOUR ABNORMAL [None]
  - VISION BLURRED [None]
